FAERS Safety Report 9752800 (Version 2)
Quarter: 2014Q1

REPORT INFORMATION
  Report Type: Spontaneous
  Country: CA (occurrence: CA)
  Receive Date: 20131213
  Receipt Date: 20140114
  Transmission Date: 20141002
  Serious: Yes (Hospitalization, Other)
  Sender: FDA-Public Use
  Company Number: CA-AMGEN-CANSP2013087253

PATIENT
  Age: 69 Year
  Sex: Male

DRUGS (3)
  1. XGEVA [Suspect]
     Indication: NEOPLASM MALIGNANT
     Dosage: UNK
     Route: 065
     Dates: start: 2006
  2. CRESTOR [Concomitant]
  3. ZOLADEX                            /00732101/ [Concomitant]

REACTIONS (4)
  - Atypical femur fracture [Unknown]
  - Device breakage [Not Recovered/Not Resolved]
  - Fall [Unknown]
  - Pain [Not Recovered/Not Resolved]
